FAERS Safety Report 13646635 (Version 2)
Quarter: 2017Q4

REPORT INFORMATION
  Report Type: Spontaneous
  Country: US (occurrence: US)
  Receive Date: 20170613
  Receipt Date: 20171013
  Transmission Date: 20180320
  Serious: No
  Sender: FDA-Public Use
  Company Number: US-PFIZER INC-2017246404

PATIENT
  Age: 44 Year
  Sex: Male

DRUGS (1)
  1. SUTENT [Suspect]
     Active Substance: SUNITINIB MALATE
     Indication: GASTROINTESTINAL STROMAL TUMOUR
     Dosage: 50 MG, CYCLIC (28 DAYS ON/14 DAYS OFF)
     Dates: start: 20170601, end: 20170926

REACTIONS (5)
  - Neoplasm progression [Unknown]
  - Fatigue [Unknown]
  - Bone pain [Unknown]
  - Nausea [Unknown]
  - Pruritus [Unknown]

NARRATIVE: CASE EVENT DATE: 2017
